FAERS Safety Report 5228943-X (Version None)
Quarter: 2007Q1

REPORT INFORMATION
  Report Type: 
  Country: None (occurrence: None)
  Receive Date: 20070131
  Receipt Date: 20070122
  Transmission Date: 20070707
  Serious: Yes (Hospitalization)
  Sender: FDA-Public Use
  Company Number: R301632-315-USA

PATIENT
  Age: 62 Year
  Sex: Male
  Weight: 84 kg

DRUGS (14)
  1. ACIPHEX [Suspect]
     Indication: DYSPEPSIA
     Dosage: 10 MG, 1 IN 1 D, ORAL
     Route: 048
     Dates: start: 20060406, end: 20060420
  2. HYDROXYZINE [Concomitant]
  3. BUPROPION HCL [Concomitant]
  4. GARLIC (GARLIC) [Concomitant]
  5. OMEGA 3 (FISH OIL) [Concomitant]
  6. VITAMIN A [Concomitant]
  7. VITAMIN B COMPLEX (B-KOMPLEX ^LECIVA^) [Concomitant]
  8. ASCORBIC ACID [Concomitant]
  9. VITAMIN D [Concomitant]
  10. VITAMIN E [Concomitant]
  11. LISINOPRIL [Concomitant]
  12. ASPIRIN [Concomitant]
  13. TUMS (CALCIUM CARBONATE) [Concomitant]
  14. NIACIN [Concomitant]

REACTIONS (2)
  - CONDITION AGGRAVATED [None]
  - PERIPHERAL ARTERIAL OCCLUSIVE DISEASE [None]
